FAERS Safety Report 8336315-4 (Version None)
Quarter: 2012Q2

REPORT INFORMATION
  Report Type: 
  Country: None (occurrence: None)
  Receive Date: 20120504
  Receipt Date: 20120426
  Transmission Date: 20120825
  Serious: Yes (Other)
  Sender: FDA-Public Use
  Company Number: PHHY2012MX036567

PATIENT
  Sex: Female

DRUGS (3)
  1. EXFORGE [Suspect]
     Indication: HYPERTENSION
     Dosage: 1 DF, DAILY
     Dates: start: 20110401
  2. IMDUR [Concomitant]
     Indication: INFLAMMATION
  3. IMDUR [Concomitant]
     Indication: PAIN
     Dates: start: 20110401

REACTIONS (2)
  - FALL [None]
  - FEMUR FRACTURE [None]
